FAERS Safety Report 15760868 (Version 3)
Quarter: 2019Q1

REPORT INFORMATION
  Report Type: Spontaneous
  Country: US (occurrence: US)
  Receive Date: 20181226
  Receipt Date: 20190314
  Transmission Date: 20190417
  Serious: No
  Sender: FDA-Public Use
  Company Number: US-PFIZER INC-2018509360

PATIENT
  Sex: Female

DRUGS (1)
  1. VENLAFAXINE HCL [Suspect]
     Active Substance: VENLAFAXINE HYDROCHLORIDE
     Indication: PANIC ATTACK
     Dosage: UNK

REACTIONS (5)
  - Gastrointestinal disorder [Unknown]
  - Anxiety [Unknown]
  - Headache [Unknown]
  - Drug ineffective [Unknown]
  - Abdominal discomfort [Unknown]
